FAERS Safety Report 9193332 (Version 2)
Quarter: 2013Q2

REPORT INFORMATION
  Report Type: Report from Study
  Country: US (occurrence: US)
  Receive Date: 20130327
  Receipt Date: 20130625
  Transmission Date: 20140414
  Serious: Yes (Disabling, Other)
  Sender: FDA-Public Use
  Company Number: US-ASTRAZENECA-2013SE17376

PATIENT
  Age: 48 Year
  Sex: Male

DRUGS (26)
  1. OMEPRAZOLE [Suspect]
     Indication: EOSINOPHILIC OESOPHAGITIS
     Route: 048
  2. OMEPRAZOLE [Suspect]
     Indication: HIATUS HERNIA
     Route: 048
  3. OMEPRAZOLE [Suspect]
     Indication: EOSINOPHILIC OESOPHAGITIS
     Dosage: OTC, UNKNOWN DOSE DAILY,IN COMBINATION WITH ZANTAC OTC AND PROTONIX AT NIGHT
     Route: 048
  4. OMEPRAZOLE [Suspect]
     Indication: HIATUS HERNIA
     Dosage: OTC, UNKNOWN DOSE DAILY,IN COMBINATION WITH ZANTAC OTC AND PROTONIX AT NIGHT
     Route: 048
  5. NEXIUM [Suspect]
     Indication: GASTROOESOPHAGEAL REFLUX DISEASE
     Route: 048
  6. NEXIUM [Suspect]
     Indication: GASTROOESOPHAGEAL REFLUX DISEASE
     Route: 048
  7. NEXIUM [Suspect]
     Indication: EOSINOPHILIC OESOPHAGITIS
     Route: 048
  8. NEXIUM [Suspect]
     Indication: HIATUS HERNIA
     Route: 048
  9. NEXIUM [Suspect]
     Indication: OESOPHAGEAL IRRITATION
     Route: 048
  10. NEXIUM [Suspect]
     Indication: GASTROOESOPHAGEAL REFLUX DISEASE
     Dosage: 2 CAPSULES INSTEAD OF ONE
     Route: 048
  11. NEXIUM [Suspect]
     Indication: GASTROOESOPHAGEAL REFLUX DISEASE
     Dosage: 2 CAPSULES INSTEAD OF ONE
     Route: 048
  12. NEXIUM [Suspect]
     Indication: EOSINOPHILIC OESOPHAGITIS
     Dosage: 2 CAPSULES INSTEAD OF ONE
     Route: 048
  13. NEXIUM [Suspect]
     Indication: HIATUS HERNIA
     Dosage: 2 CAPSULES INSTEAD OF ONE
     Route: 048
  14. NEXIUM [Suspect]
     Indication: OESOPHAGEAL IRRITATION
     Dosage: 2 CAPSULES INSTEAD OF ONE
     Route: 048
  15. NEXIUM [Suspect]
     Indication: GASTROOESOPHAGEAL REFLUX DISEASE
     Route: 048
     Dates: start: 201204, end: 201302
  16. NEXIUM [Suspect]
     Indication: GASTROOESOPHAGEAL REFLUX DISEASE
     Route: 048
     Dates: start: 201204, end: 201302
  17. NEXIUM [Suspect]
     Indication: EOSINOPHILIC OESOPHAGITIS
     Route: 048
     Dates: start: 201204, end: 201302
  18. NEXIUM [Suspect]
     Indication: HIATUS HERNIA
     Route: 048
     Dates: start: 201204, end: 201302
  19. NEXIUM [Suspect]
     Indication: OESOPHAGEAL IRRITATION
     Route: 048
     Dates: start: 201204, end: 201302
  20. NEXIUM [Suspect]
     Indication: GASTROOESOPHAGEAL REFLUX DISEASE
     Dosage: TWICE A DAY A COUPLE OF TIMES
     Route: 048
  21. NEXIUM [Suspect]
     Indication: GASTROOESOPHAGEAL REFLUX DISEASE
     Dosage: TWICE A DAY A COUPLE OF TIMES
     Route: 048
  22. NEXIUM [Suspect]
     Indication: EOSINOPHILIC OESOPHAGITIS
     Dosage: TWICE A DAY A COUPLE OF TIMES
     Route: 048
  23. NEXIUM [Suspect]
     Indication: HIATUS HERNIA
     Dosage: TWICE A DAY A COUPLE OF TIMES
     Route: 048
  24. NEXIUM [Suspect]
     Indication: OESOPHAGEAL IRRITATION
     Dosage: TWICE A DAY A COUPLE OF TIMES
     Route: 048
  25. OTHER MEDICATION [Suspect]
     Route: 065
  26. NAPROXEN [Concomitant]
     Indication: PAIN

REACTIONS (13)
  - Hypophagia [Not Recovered/Not Resolved]
  - Weight decreased [Not Recovered/Not Resolved]
  - Haematemesis [Not Recovered/Not Resolved]
  - Spinal disorder [Unknown]
  - Weight increased [Unknown]
  - Vomiting [Not Recovered/Not Resolved]
  - Abdominal pain upper [Not Recovered/Not Resolved]
  - Barrett^s oesophagus [Unknown]
  - Gastrooesophageal reflux disease [Not Recovered/Not Resolved]
  - Drug dose omission [Unknown]
  - Off label use [Unknown]
  - Intentional drug misuse [Unknown]
  - Drug ineffective [Unknown]
